FAERS Safety Report 8077953-6 (Version None)
Quarter: 2012Q1

REPORT INFORMATION
  Report Type: 
  Country: None (occurrence: None)
  Receive Date: 20120127
  Receipt Date: 20110216
  Transmission Date: 20120608
  Serious: No
  Sender: FDA-Public Use
  Company Number: US-ABBOTT-11P-163-0695359-00

PATIENT
  Age: 55 Year
  Sex: Male

DRUGS (2)
  1. ARTHROTEC [Concomitant]
     Indication: PRODUCT USED FOR UNKNOWN INDICATION
     Dosage: 75 MG. DAILY
  2. HUMIRA [Suspect]
     Indication: RHEUMATOID ARTHRITIS
     Dates: start: 20100601, end: 20110105

REACTIONS (7)
  - RASH PUSTULAR [None]
  - URTICARIA [None]
  - PAIN IN EXTREMITY [None]
  - RASH [None]
  - PSORIASIS [None]
  - DEVICE MALFUNCTION [None]
  - RASH PAPULAR [None]
